FAERS Safety Report 6455196-7 (Version None)
Quarter: 2009Q4

REPORT INFORMATION
  Report Type: 
  Country: None (occurrence: None)
  Receive Date: 20091119
  Receipt Date: 20091103
  Transmission Date: 20100525
  Serious: Yes (Life-Threatening, Other)
  Sender: FDA-Public Use
  Company Number: JHP200900353

PATIENT
  Age: 86 Year
  Sex: Female
  Weight: 46.6 kg

DRUGS (28)
  1. PITRESSIN [Suspect]
     Indication: HYPOTENSION
     Dosage: 0.04 UNITS, QH, INTRAVENOUS
     Route: 042
     Dates: start: 20090718, end: 20090718
  2. BLINDED STUDY MEDICATION (BLINDED STUDY MEDICATION) [Suspect]
     Indication: MYOCARDIAL REPERFUSION INJURY
     Dosage: 432 ML, IV DRIP
     Route: 041
     Dates: start: 20090717, end: 20090717
  3. CARDIOPLEGIA (MAGNESIUM CHLOIRDE ANHYDROUS, POTASSIUM CHLORIDE, PROCAI [Concomitant]
  4. AMIODARONE HCL [Concomitant]
  5. CALCIUM CHLORIDE [Concomitant]
  6. DOBUTAMINE HCL [Concomitant]
  7. FUROSEMIDE (FUROSEMDIE SODIUM) [Concomitant]
  8. MAGNESIUM (MAGNESIUM HYDROXIDE) [Concomitant]
  9. METOPROLOL TARTRATE [Concomitant]
  10. PANCURONIUM [Concomitant]
  11. SODIUM BICARBONATE IN PLASTIC CONTAINER [Concomitant]
  12. VERSED [Concomitant]
  13. AMICAR [Concomitant]
  14. EPHEDRINE (EPHEDRINE HYDROCHLORIDE) [Concomitant]
  15. ETOMIDATE [Concomitant]
  16. MILRINONE LACTATE (MILRINONE LACTATE) [Concomitant]
  17. NITROGLYCERIN [Concomitant]
  18. NITROPRUSSIDE (NITROPRUSSIDE) [Concomitant]
  19. PHENYLEPHRINE (PHENYLEPHRINE HYDROCHLORIDE) [Concomitant]
  20. POTASSIUM (POTASSIUM GLUCONATE) [Concomitant]
  21. PROPOFOL [Concomitant]
  22. ROCURONIUM BROMIDE [Concomitant]
  23. TRANEXAMIC ACID (TRANEXAMIC ACID) [Concomitant]
  24. ASPIRIN [Concomitant]
  25. COREG (CARVEDIOL) [Concomitant]
  26. IMDUR [Concomitant]
  27. SIMVASTATIN [Concomitant]
  28. EPINEPHRINE(EPINEPHINE BITARTRATE) [Concomitant]

REACTIONS (3)
  - CARDIOGENIC SHOCK [None]
  - POST PROCEDURAL HAEMORRHAGE [None]
  - RESPIRATORY FAILURE [None]
